FAERS Safety Report 18740174 (Version 1)
Quarter: 2021Q1

REPORT INFORMATION
  Report Type: Spontaneous
  Country: DE (occurrence: DE)
  Receive Date: 20210114
  Receipt Date: 20210114
  Transmission Date: 20210419
  Serious: Yes (Other)
  Sender: FDA-Public Use
  Company Number: DE-TEVA-2021-DE-1868726

PATIENT
  Age: 72 Year
  Sex: Female

DRUGS (1)
  1. HCT?CT 25 MG [Suspect]
     Active Substance: HYDROCHLOROTHIAZIDE
     Dosage: 12.5 MILLIGRAM DAILY;
     Route: 048
     Dates: start: 199108, end: 202012

REACTIONS (2)
  - Skin cancer [Unknown]
  - Basal cell carcinoma [Unknown]
